FAERS Safety Report 5834948-8 (Version None)
Quarter: 2008Q3

REPORT INFORMATION
  Report Type: 
  Country: None (occurrence: None)
  Receive Date: 20080804
  Receipt Date: 20080730
  Transmission Date: 20090109
  Serious: Yes (Hospitalization)
  Sender: FDA-Public Use
  Company Number: 2008SP015589

PATIENT
  Age: 48 Year
  Sex: Female

DRUGS (2)
  1. RIBAVIRIN [Suspect]
     Indication: HEPATITIS C
     Dates: start: 20080201
  2. INTERFERON [Suspect]
     Indication: HEPATITIS C
     Dates: start: 20080201

REACTIONS (1)
  - ANAEMIA HAEMOLYTIC AUTOIMMUNE [None]
